FAERS Safety Report 7691045-7 (Version None)
Quarter: 2011Q3

REPORT INFORMATION
  Report Type: 
  Country: None (occurrence: None)
  Receive Date: 20110817
  Receipt Date: 20110817
  Transmission Date: 20111222
  Serious: Yes (Hospitalization)
  Sender: FDA-Public Use
  Company Number: None

PATIENT
  Age: 48 Year
  Sex: Male
  Weight: 92.7 kg

DRUGS (6)
  1. ZIPRASIDONE HYDROCHLORIDE [Suspect]
     Indication: MANIA
     Dosage: 10 MG TID IM
     Route: 030
     Dates: start: 20110609, end: 20110611
  2. ZIPRASIDONE HYDROCHLORIDE [Suspect]
     Indication: CONVULSION
     Dosage: 10 MG TID IM
     Route: 030
     Dates: start: 20110609, end: 20110611
  3. ZIPRASIDONE HYDROCHLORIDE [Suspect]
     Indication: TREMOR
     Dosage: 10 MG TID IM
     Route: 030
     Dates: start: 20110609, end: 20110611
  4. ZIPRASIDONE HYDROCHLORIDE [Suspect]
     Indication: ALCOHOL ABUSE
     Dosage: 10 MG TID IM
     Route: 030
     Dates: start: 20110609, end: 20110611
  5. ZIPRASIDONE HYDROCHLORIDE [Suspect]
     Indication: RESTLESSNESS
     Dosage: 10 MG TID IM
     Route: 030
     Dates: start: 20110609, end: 20110611
  6. ZIPRASIDONE HYDROCHLORIDE [Suspect]
     Indication: BIPOLAR DISORDER
     Dosage: 10 MG TID IM
     Route: 030
     Dates: start: 20110609, end: 20110611

REACTIONS (2)
  - DYSTONIA [None]
  - ANXIETY [None]
